FAERS Safety Report 8728320 (Version 3)
Quarter: 2012Q4

REPORT INFORMATION
  Report Type: 
  Country: US (occurrence: US)
  Receive Date: 20120817
  Receipt Date: 20121228
  Transmission Date: 20130627
  Serious: Yes (Hospitalization)
  Sender: FDA-Public Use
  Company Number: US-BAYER-2012-082778

PATIENT
  Age: 31 Year
  Sex: Female
  Weight: 48.75 kg

DRUGS (15)
  1. YASMIN [Suspect]
     Indication: ENDOMETRIOSIS
     Dosage: UNK
     Dates: start: 20020701, end: 20021030
  2. YASMIN [Suspect]
     Indication: ACNE
     Dosage: UNK
     Dates: start: 200208, end: 20021024
  3. YASMIN [Suspect]
     Indication: PREMENSTRUAL DYSPHORIC DISORDER
  4. SERZONE [Concomitant]
  5. EXCEDRIN P.M. [Concomitant]
  6. MULTIVITAMINS [Concomitant]
  7. IBUPROFEN [Concomitant]
  8. VITAMIN B6 [Concomitant]
  9. TYLENOL [Concomitant]
  10. NAPROSYN [Concomitant]
  11. ATIVAN [Concomitant]
     Indication: ANXIETY
  12. TORADOL [Concomitant]
     Indication: CHEST DISCOMFORT
  13. DIFLUCAN [Concomitant]
     Dosage: 150 mg, Take 1 tablet now and repeat in 3 days
     Route: 048
  14. SULFAMETH/TRIMETHOPRIM [Concomitant]
     Dosage: 800/160 tabs, Take 1 table twice a day for 7 days
     Route: 048
  15. METRONIDAZOLE [Concomitant]
     Dosage: Take one 500 mg tablet twicea day for 7days
     Route: 048

REACTIONS (10)
  - Deep vein thrombosis [None]
  - Pulmonary embolism [None]
  - Injury [None]
  - Emotional distress [None]
  - Pain [None]
  - Anxiety [None]
  - General physical health deterioration [None]
  - Pain [None]
  - Depression [None]
  - Mental disorder [None]
